FAERS Safety Report 7495765-9 (Version None)
Quarter: 2011Q2

REPORT INFORMATION
  Report Type: 
  Country: None (occurrence: None)
  Receive Date: 20110523
  Receipt Date: 20110509
  Transmission Date: 20111010
  Serious: Yes (Other)
  Sender: FDA-Public Use
  Company Number: US-ELI_LILLY_AND_COMPANY-US201105003759

PATIENT
  Sex: Male

DRUGS (3)
  1. STRATTERA [Suspect]
     Dosage: 60 MG, UNK
  2. TENEX [Concomitant]
     Dosage: UNK
  3. STRATTERA [Suspect]
     Dosage: 80 MG, UNK

REACTIONS (1)
  - ELECTROCARDIOGRAM QT PROLONGED [None]
